FAERS Safety Report 20417452 (Version 2)
Quarter: 2022Q1

REPORT INFORMATION
  Report Type: Spontaneous
  Country: GB (occurrence: GB)
  Receive Date: 20220202
  Receipt Date: 20220221
  Transmission Date: 20220423
  Serious: Yes (Other)
  Sender: FDA-Public Use
  Company Number: GB-PFIZER INC-202200118853

PATIENT
  Age: 59 Year
  Sex: Male

DRUGS (2)
  1. CAVERJECT [Suspect]
     Active Substance: ALPROSTADIL
     Indication: Erectile dysfunction
     Dosage: 10 UG, ON DEMAND (MAX 3 TIMES A WEEK)
     Route: 017
  2. SOLIFENACIN [Concomitant]
     Active Substance: SOLIFENACIN
     Indication: Lower urinary tract symptoms
     Dosage: 5 MG, 1X/DAY

REACTIONS (2)
  - Penile haemorrhage [Not Recovered/Not Resolved]
  - Blood urine present [Unknown]
